FAERS Safety Report 5221066-5 (Version None)
Quarter: 2007Q1

REPORT INFORMATION
  Report Type: 
  Country: None (occurrence: None)
  Receive Date: 20070123
  Receipt Date: 20070111
  Transmission Date: 20070707
  Serious: Yes (Hospitalization)
  Sender: FDA-Public Use
  Company Number: 235030

PATIENT
  Age: 67 Year
  Sex: Female
  Weight: 60.8 kg

DRUGS (6)
  1. RITUXAN [Suspect]
     Indication: RHEUMATOID ARTHRITIS
     Dates: start: 20060928
  2. FOLIC ACID [Concomitant]
  3. DARVOCET (ACETAMINOPHEN, PROPOXYPHENE NAPSYLATE) [Concomitant]
  4. ATENOLOL [Concomitant]
  5. PREDNISONE TAB [Concomitant]
  6. PROZAC [Concomitant]

REACTIONS (1)
  - PANCREATITIS [None]
